FAERS Safety Report 15841150 (Version 1)
Quarter: 2019Q1

REPORT INFORMATION
  Report Type: Other
  Country: PT (occurrence: PT)
  Receive Date: 20190118
  Receipt Date: 20190118
  Transmission Date: 20190417
  Serious: Yes (Hospitalization, Other)
  Sender: FDA-Public Use
  Company Number: PT-ORCHID HEALTHCARE-2061432

PATIENT
  Age: 62 Year
  Sex: Female

DRUGS (12)
  1. METHYLPREDNISOLONE. [Concomitant]
     Active Substance: METHYLPREDNISOLONE
     Route: 042
  2. OXAZEPAM. [Concomitant]
     Active Substance: OXAZEPAM
     Route: 065
  3. TIOTROPIUM BROMIDE [Suspect]
     Active Substance: TIOTROPIUM BROMIDE
     Route: 065
  4. INDACATEROL [Concomitant]
     Active Substance: INDACATEROL
     Route: 065
  5. MIRTAZAPINE. [Concomitant]
     Active Substance: MIRTAZAPINE
     Route: 065
  6. BUDESONIDE. [Concomitant]
     Active Substance: BUDESONIDE
     Route: 065
  7. CEFUROXIME AXETIL. [Suspect]
     Active Substance: CEFUROXIME AXETIL
     Route: 042
  8. ROSUVASTATIN. [Concomitant]
     Active Substance: ROSUVASTATIN
     Route: 065
  9. ENALAPRIL/LERCANIDIPINE [Concomitant]
     Active Substance: ENALAPRIL\LERCANIDIPINE
     Route: 065
  10. CEFTAZIDIME. [Concomitant]
     Active Substance: CEFTAZIDIME
     Route: 065
  11. ACETYLSALICYLIC ACID [Concomitant]
     Active Substance: ASPIRIN
     Route: 065
  12. CEFAZOLIN [Concomitant]
     Active Substance: CEFAZOLIN
     Route: 065

REACTIONS (3)
  - Cardio-respiratory arrest [Recovered/Resolved]
  - Partial seizures [Recovered/Resolved]
  - Anaphylactic shock [Recovered/Resolved]
